FAERS Safety Report 8140315-7 (Version None)
Quarter: 2012Q1

REPORT INFORMATION
  Report Type: 
  Country: None (occurrence: None)
  Receive Date: 20120216
  Receipt Date: 20120211
  Transmission Date: 20120608
  Serious: No
  Sender: FDA-Public Use
  Company Number: US-PFIZER INC-K200900562

PATIENT
  Sex: Female
  Weight: 68.027 kg

DRUGS (13)
  1. VITAMIN A [Concomitant]
     Indication: INTESTINAL OPERATION
     Dosage: UNK
  2. ASCORBIC ACID [Concomitant]
     Indication: FOOD ALLERGY
     Dosage: UNK
  3. BENADRYL [Concomitant]
     Indication: HYPERSENSITIVITY
     Dosage: 350 MG, 1X/DAY
     Route: 048
  4. MOTRIN [Concomitant]
     Indication: BACK PAIN
     Dosage: 1600-2400 MG, 1X/DAY
  5. MOTRIN [Concomitant]
     Indication: PAIN IN EXTREMITY
     Dosage: 800 MG, UNK
  6. FLECTOR [Suspect]
     Indication: PAIN IN EXTREMITY
     Dosage: 1 PATCH, PRN
     Route: 061
     Dates: start: 20090504, end: 20090507
  7. CALCIUM [Concomitant]
     Dosage: UNK
  8. FLECTOR [Suspect]
     Indication: MUSCULOSKELETAL PAIN
     Dosage: 1 DF, AS NEEDED
     Route: 061
     Dates: start: 20080901
  9. CLIMARA [Concomitant]
     Indication: BLOOD OESTROGEN
     Dosage: 1 PATCH, WEEKLY
     Route: 061
  10. BECONASE [Concomitant]
     Dosage: UNK
     Route: 061
  11. MOTRIN [Concomitant]
     Indication: OSTEOARTHRITIS
  12. LEVOTHYROXINE [Concomitant]
     Indication: THYROID DISORDER
     Dosage: UNK
  13. VITAMIN D [Concomitant]
     Indication: VITAMIN D DEFICIENCY
     Dosage: UNK

REACTIONS (5)
  - MUSCULOSKELETAL PAIN [None]
  - PERFUME SENSITIVITY [None]
  - FALL [None]
  - PAIN [None]
  - DRUG INEFFECTIVE [None]
